FAERS Safety Report 7266501-6 (Version None)
Quarter: 2011Q1

REPORT INFORMATION
  Report Type: 
  Country: None (occurrence: None)
  Receive Date: 20110131
  Receipt Date: 20110124
  Transmission Date: 20110831
  Serious: Yes (Hospitalization)
  Sender: FDA-Public Use
  Company Number: US-US-EMD SERONO, INC.-230620J10USA

PATIENT
  Sex: Female

DRUGS (2)
  1. REBIF [Suspect]
     Indication: MULTIPLE SCLEROSIS
     Route: 058
     Dates: start: 20070702
  2. ASACOL [Concomitant]
     Indication: COLITIS ULCERATIVE
     Dates: end: 20090101

REACTIONS (7)
  - DYSSTASIA [None]
  - VOMITING [None]
  - OEDEMA PERIPHERAL [None]
  - MULTIPLE SCLEROSIS [None]
  - URINARY TRACT INFECTION [None]
  - DEEP VEIN THROMBOSIS [None]
  - MEMORY IMPAIRMENT [None]
